FAERS Safety Report 15750739 (Version 4)
Quarter: 2019Q1

REPORT INFORMATION
  Report Type: Spontaneous
  Country: US (occurrence: US)
  Receive Date: 20181221
  Receipt Date: 20190129
  Transmission Date: 20190417
  Serious: Yes (Other)
  Sender: FDA-Public Use
  Company Number: US-ALLERGAN-1858421US

PATIENT
  Age: 77 Year
  Sex: Male

DRUGS (6)
  1. CELEXA [Suspect]
     Active Substance: CITALOPRAM HYDROBROMIDE
     Indication: DEPRESSION
     Dosage: 40 MG, QD
     Route: 048
     Dates: start: 2010
  2. ANTIHYPERTENSIVES [Concomitant]
     Active Substance: UNSPECIFIED INGREDIENT
     Indication: HYPERTENSION
     Dosage: UNK
     Route: 048
  3. WELLBUTRIN [Concomitant]
     Active Substance: BUPROPION HYDROCHLORIDE
     Indication: DEPRESSION
     Dosage: UNK
     Route: 048
     Dates: start: 2008
  4. CELEXA [Suspect]
     Active Substance: CITALOPRAM HYDROBROMIDE
     Dosage: 60 MG, QD
     Route: 048
     Dates: start: 2008, end: 2010
  5. CHOLESTEROL MEDICINE [Concomitant]
     Active Substance: UNSPECIFIED INGREDIENT
     Indication: BLOOD CHOLESTEROL INCREASED
     Dosage: UNK
     Route: 048
  6. SWALLOWING DIFFICULTY MEDICINE [Concomitant]
     Indication: DYSPHAGIA
     Dosage: UNK
     Route: 048

REACTIONS (6)
  - Myasthenia gravis [Not Recovered/Not Resolved]
  - Sinus arrhythmia [Recovered/Resolved]
  - Eye disorder [Recovered/Resolved]
  - Meningioma [Not Recovered/Not Resolved]
  - Prescribed overdose [Unknown]
  - Electrocardiogram abnormal [Not Recovered/Not Resolved]

NARRATIVE: CASE EVENT DATE: 2008
